FAERS Safety Report 8867888 (Version 1)
Quarter: 2012Q4

REPORT INFORMATION
  Report Type: 
  Country: US (occurrence: US)
  Receive Date: 20121026
  Receipt Date: 20121026
  Transmission Date: 20130627
  Serious: No
  Sender: FDA-Public Use
  Company Number: US-AMGEN-USASP2012041030

PATIENT
  Age: 52 Year
  Sex: Female
  Weight: 68.03 kg

DRUGS (7)
  1. ENBREL [Suspect]
     Indication: PRODUCT USED FOR UNKNOWN INDICATION
     Dosage: 50 mg, qwk
     Route: 058
  2. SOMA [Concomitant]
     Dosage: 350 mg, UNK
  3. CYCLESSA [Concomitant]
     Dosage: UNK
  4. VITAMIN D /00107901/ [Concomitant]
     Dosage: UNK
  5. LORTAB                             /00607101/ [Concomitant]
     Dosage: 5 UNK, UNK
  6. FOLIC ACID [Concomitant]
     Dosage: 20 mg, UNK
  7. CARTIA XT [Concomitant]
     Dosage: 300/ 24 HR

REACTIONS (1)
  - Rash [Unknown]
